FAERS Safety Report 10479991 (Version 2)
Quarter: 2014Q4

REPORT INFORMATION
  Report Type: Spontaneous
  Country: FR (occurrence: FR)
  Receive Date: 20140929
  Receipt Date: 20141013
  Transmission Date: 20150528
  Serious: Yes (Life-Threatening, Hospitalization)
  Sender: FDA-Public Use
  Company Number: FR-AMGEN-FRASP2014073766

PATIENT
  Age: 83 Year
  Sex: Female
  Weight: 72 kg

DRUGS (4)
  1. NEBIVOLOL [Concomitant]
     Active Substance: NEBIVOLOL
     Indication: HYPERTENSION
     Dosage: 5 MG, UNK
     Route: 048
     Dates: start: 201301
  2. PROLIA [Suspect]
     Active Substance: DENOSUMAB
     Indication: OSTEOPOROSIS
     Dosage: 60 MG, UNK
     Route: 058
     Dates: start: 20140430
  3. NEBIVOLOL [Concomitant]
     Active Substance: NEBIVOLOL
     Indication: ARRHYTHMIA
  4. PREVISCAN                          /00261401/ [Concomitant]
     Active Substance: PENTOXIFYLLINE
     Indication: ATRIAL FIBRILLATION
     Dosage: 1.5 TABLET, UNK
     Route: 048
     Dates: start: 201301

REACTIONS (1)
  - Pancreatic carcinoma [Not Recovered/Not Resolved]

NARRATIVE: CASE EVENT DATE: 20140731
